FAERS Safety Report 8010591-X (Version None)
Quarter: 2011Q4

REPORT INFORMATION
  Report Type: 
  Country: None (occurrence: None)
  Receive Date: 20111228
  Receipt Date: 20111221
  Transmission Date: 20120403
  Serious: Yes (Death)
  Sender: FDA-Public Use
  Company Number: PHHY2011US25221

PATIENT
  Sex: Male

DRUGS (9)
  1. POTASSIUM PHOSPHATES [Concomitant]
  2. IRON [Concomitant]
     Dosage: 150 MG, BID
  3. AMBIEN [Concomitant]
     Dosage: 5 MG, UNK
  4. PANTOPRAZOLE [Concomitant]
     Dosage: 40 MG,DAILY
  5. AVAPRO [Concomitant]
     Dosage: 150 MG, UNK
  6. METOPROLOL SUCCINATE [Concomitant]
     Dosage: 50 MG,
  7. SYNTHROID [Concomitant]
     Dosage: 50 UG, UNK
  8. GLEEVEC [Suspect]
     Indication: GASTROINTESTINAL STROMAL TUMOUR
     Dosage: 400 MG, DAILY
     Route: 048
     Dates: start: 20110301
  9. TAMSULOSIN HYDROCHLORIDE [Concomitant]
     Dosage: 0.4 MG, UNK

REACTIONS (7)
  - COMPLETED SUICIDE [None]
  - ASPHYXIA [None]
  - DEPRESSION [None]
  - FATIGUE [None]
  - ANAEMIA [None]
  - WEIGHT DECREASED [None]
  - DECREASED APPETITE [None]
